FAERS Safety Report 5868840-X (Version None)
Quarter: 2008Q3

REPORT INFORMATION
  Report Type: 
  Country: None (occurrence: None)
  Receive Date: 20080828
  Receipt Date: 20080818
  Transmission Date: 20090109
  Serious: Yes (Other)
  Sender: FDA-Public Use
  Company Number: A0743501A

PATIENT
  Sex: Female

DRUGS (1)
  1. UREA HYDROGEN PEROXIDE (FORMULATION UNKNOWN) (UREA HYDROGEN PEROXIDE) [Suspect]
     Dosage: AURAL

REACTIONS (2)
  - DEAFNESS [None]
  - EAR DISCOMFORT [None]
